FAERS Safety Report 7241335-7 (Version None)
Quarter: 2011Q1

REPORT INFORMATION
  Report Type: 
  Country: None (occurrence: None)
  Receive Date: 20110124
  Receipt Date: 20110106
  Transmission Date: 20110831
  Serious: No
  Sender: FDA-Public Use
  Company Number: US-B.I. PHARMACEUTICALS,INC./RIDGEFIELD-2010-BP-13078BP

PATIENT
  Sex: Male

DRUGS (5)
  1. ATENOLOL [Concomitant]
     Indication: HYPERTENSION
     Route: 048
  2. HYTRIN [Concomitant]
     Indication: HYPERTENSION
     Route: 048
  3. SPIRIVA [Suspect]
     Indication: CHRONIC OBSTRUCTIVE PULMONARY DISEASE
     Dosage: 18 MCG
     Route: 055
  4. LASIX [Concomitant]
     Indication: FLUID RETENTION
     Route: 048
  5. LOVASTATIN [Concomitant]
     Indication: BLOOD CHOLESTEROL INCREASED
     Route: 048

REACTIONS (1)
  - TONGUE DISCOLOURATION [None]
